FAERS Safety Report 18792507 (Version 1)
Quarter: 2021Q1

REPORT INFORMATION
  Report Type: Spontaneous
  Country: US (occurrence: US)
  Receive Date: 20210127
  Receipt Date: 20210127
  Transmission Date: 20210419
  Serious: No
  Sender: FDA-Public Use
  Company Number: US-DRREDDYS-USA/USA/21/0130728

PATIENT
  Sex: Female

DRUGS (3)
  1. NUPERCAINAL [Suspect]
     Active Substance: DIBUCAINE
     Indication: THERMAL BURN
     Route: 061
  2. NUPERCAINAL [Suspect]
     Active Substance: DIBUCAINE
     Indication: SKIN LACERATION
  3. NUPERCAINAL [Suspect]
     Active Substance: DIBUCAINE
     Indication: HAEMORRHOIDS

REACTIONS (1)
  - Product use in unapproved indication [Unknown]
